FAERS Safety Report 22386766 (Version 1)
Quarter: 2023Q2

REPORT INFORMATION
  Report Type: Spontaneous
  Country: ES (occurrence: ES)
  Receive Date: 20230531
  Receipt Date: 20230531
  Transmission Date: 20230721
  Serious: Yes (Life-Threatening, Hospitalization, Other)
  Sender: FDA-Public Use
  Company Number: ES-AEMPS-1372308

PATIENT
  Age: 45 Year
  Sex: Male

DRUGS (1)
  1. ACETAMINOPHEN [Suspect]
     Active Substance: ACETAMINOPHEN
     Indication: Suspected suicide attempt
     Dosage: 75 GRAM, 1 TOTAL
     Route: 048
     Dates: start: 20230429, end: 20230429

REACTIONS (4)
  - Coma [Recovered/Resolved]
  - Coagulopathy [Recovered/Resolved]
  - Hypertransaminasaemia [Recovering/Resolving]
  - Intentional overdose [Recovered/Resolved]

NARRATIVE: CASE EVENT DATE: 20230430
